FAERS Safety Report 12919939 (Version 3)
Quarter: 2016Q4

REPORT INFORMATION
  Report Type: Spontaneous
  Country: RO (occurrence: RO)
  Receive Date: 20161107
  Receipt Date: 20161220
  Transmission Date: 20170207
  Serious: Yes (Other)
  Sender: FDA-Public Use
  Company Number: RO-GLAXOSMITHKLINE-RO2016GSK162890

PATIENT
  Age: 41 Year
  Sex: Female

DRUGS (3)
  1. ZINNAT [Suspect]
     Active Substance: CEFUROXIME AXETIL
     Indication: URINARY TRACT INFECTION
     Dosage: 500 MG, BID
     Route: 048
     Dates: start: 20161026, end: 20161102
  2. OMEZ [Concomitant]
     Active Substance: OMEPRAZOLE
     Indication: GASTRIC DISORDER
     Dosage: 20 MG, QD
     Route: 048
     Dates: start: 20161026, end: 20161102
  3. EUBIOTIC [Concomitant]
     Indication: GASTRIC DISORDER
     Dosage: 1 UNK, QD
     Dates: start: 20161026, end: 20161102

REACTIONS (3)
  - Gastrointestinal mucosal disorder [Unknown]
  - Abdominal pain [Unknown]
  - Acute haemorrhagic ulcerative colitis [Recovered/Resolved]

NARRATIVE: CASE EVENT DATE: 20161103
